FAERS Safety Report 4332419-1 (Version None)
Quarter: 2004Q2

REPORT INFORMATION
  Report Type: 
  Country: None (occurrence: None)
  Receive Date: 20040401
  Receipt Date: 20040322
  Transmission Date: 20050107
  Serious: No
  Sender: FDA-Public Use
  Company Number: 04H-087-0254229-00

PATIENT
  Sex: 0

DRUGS (3)
  1. LEUCOVORIN CALCIUM [Suspect]
     Indication: CHEMOTHERAPY
     Dosage: 210 MG/M2, WEEKLY FOR FOUR WEEKS, INTRAVENOUS
     Route: 042
  2. FLUOROURACIL [Suspect]
     Indication: CHEMOTHERAPY
     Dosage: 500 MG/M2, WEEKLY FOR FOUR WEEKS, INTRAVENOUS
     Route: 042
  3. IRINOTECAN [Suspect]
     Indication: CHEMOTHERAPY
     Dosage: 125 MG/M2, WEEKLY FOR FOUR WEEKS, INTRAVENOUS
     Route: 042

REACTIONS (1)
  - NEUTROPENIA [None]
